FAERS Safety Report 21258817 (Version 1)
Quarter: 2022Q3

REPORT INFORMATION
  Report Type: Spontaneous
  Country: US (occurrence: None)
  Receive Date: 20220825
  Receipt Date: 20220825
  Transmission Date: 20221027
  Serious: Yes (Hospitalization, Other)
  Sender: FDA-Public Use
  Company Number: None

PATIENT
  Age: 49 Year
  Sex: Female
  Weight: 93.15 kg

DRUGS (16)
  1. METOPROLOL [Suspect]
     Active Substance: METOPROLOL
     Indication: Hypokalaemia
     Dosage: FREQUENCY : TWICE A DAY;?
     Route: 048
     Dates: start: 20220219, end: 20220411
  2. METOPROLOL [Suspect]
     Active Substance: METOPROLOL
     Indication: Hypertension
  3. Flooxetine [Concomitant]
  4. HYDROXYZINE [Concomitant]
     Active Substance: HYDROXYZINE HYDROCHLORIDE
  5. PROGESTERONE [Concomitant]
     Active Substance: PROGESTERONE
  6. Apple cider vinegar gummies [Concomitant]
  7. HERBALS [Concomitant]
     Active Substance: HERBALS
  8. Ashwagandha Collagen [Concomitant]
  9. Daily Women^s one a day multi [Concomitant]
  10. Folate Magnesium [Concomitant]
  11. CANNABIS SATIVA SUBSP. INDICA TOP [Concomitant]
     Active Substance: CANNABIS SATIVA SUBSP. INDICA TOP
  12. DIMETHYL SULFONE [Concomitant]
     Active Substance: DIMETHYL SULFONE
  13. NAC [Concomitant]
  14. PASSION FLOWER [Concomitant]
     Active Substance: HERBALS\HOMEOPATHICS\PASSIFLORA INCARNATA FLOWER
  15. POTASSIUM [Concomitant]
     Active Substance: POTASSIUM
  16. Vitamin C with rose hips [Concomitant]

REACTIONS (6)
  - Substance-induced psychotic disorder [None]
  - Quality of life decreased [None]
  - General physical health deterioration [None]
  - Malaise [None]
  - Abnormal behaviour [None]
  - Delusion [None]

NARRATIVE: CASE EVENT DATE: 20220219
